FAERS Safety Report 12308774 (Version 1)
Quarter: 2016Q2

REPORT INFORMATION
  Report Type: Spontaneous
  Country: US (occurrence: None)
  Receive Date: 20160426
  Receipt Date: 20160426
  Transmission Date: 20160815
  Serious: Yes (Hospitalization)
  Sender: FDA-Public Use
  Company Number: None

PATIENT
  Age: 70 Year
  Sex: Male
  Weight: 59.8 kg

DRUGS (18)
  1. CYANOCOBALAMIN. [Concomitant]
     Active Substance: CYANOCOBALAMIN
  2. MULTIVITAMIN [Concomitant]
     Active Substance: VITAMINS
  3. DULOXETINE. [Concomitant]
     Active Substance: DULOXETINE
  4. PROPRANOLOL [Concomitant]
     Active Substance: PROPRANOLOL\PROPRANOLOL HYDROCHLORIDE
  5. ASCORBIC ACID. [Concomitant]
     Active Substance: ASCORBIC ACID
  6. LOSARTAN. [Concomitant]
     Active Substance: LOSARTAN
  7. ACETAMINOPHEN\HYDROCODONE BITARTRATE [Concomitant]
     Active Substance: ACETAMINOPHEN\HYDROCODONE BITARTRATE
  8. PIOGLITAZONE. [Concomitant]
     Active Substance: PIOGLITAZONE
  9. PREGABALIN. [Concomitant]
     Active Substance: PREGABALIN
  10. DABIGATRAN, 75 MG BOEHRINGER-INGELHEIM [Suspect]
     Active Substance: DABIGATRAN
     Indication: ATRIAL FIBRILLATION
     Route: 048
  11. FISH OIL [Concomitant]
     Active Substance: FISH OIL
  12. ROSUVASTATIN. [Concomitant]
     Active Substance: ROSUVASTATIN
  13. MS CONTIN [Concomitant]
     Active Substance: MORPHINE SULFATE
  14. NITROFURANTOIN. [Concomitant]
     Active Substance: NITROFURANTOIN
  15. ORPHENADRINE [Concomitant]
     Active Substance: ORPHENADRINE
  16. NABUMETONE, 500 MG [Suspect]
     Active Substance: NABUMETONE
     Indication: ARTHRITIS
     Route: 048
  17. NABUMETONE, 500 MG [Suspect]
     Active Substance: NABUMETONE
     Indication: BACK PAIN
     Route: 048
  18. ASPIRIN. [Concomitant]
     Active Substance: ASPIRIN

REACTIONS (3)
  - Gastrointestinal haemorrhage [None]
  - Syncope [None]
  - Anaemia [None]

NARRATIVE: CASE EVENT DATE: 20160421
